FAERS Safety Report 7273521-4 (Version None)
Quarter: 2011Q1

REPORT INFORMATION
  Report Type: 
  Country: None (occurrence: None)
  Receive Date: 20110203
  Receipt Date: 20110124
  Transmission Date: 20110831
  Serious: Yes (Hospitalization)
  Sender: FDA-Public Use
  Company Number: US-BAXTER-2010BH019449

PATIENT
  Age: 80 Year
  Sex: Female

DRUGS (2)
  1. DIANEAL [Suspect]
     Indication: PERITONEAL DIALYSIS
     Route: 033
     Dates: end: 20100701
  2. DIANEAL [Suspect]
     Indication: PERITONEAL DIALYSIS
     Route: 033
     Dates: end: 20100701

REACTIONS (5)
  - ABDOMINAL PAIN UPPER [None]
  - PERITONITIS BACTERIAL [None]
  - DIVERTICULITIS [None]
  - MALAISE [None]
  - ABDOMINAL DISTENSION [None]
